FAERS Safety Report 17812823 (Version 1)
Quarter: 2020Q2

REPORT INFORMATION
  Report Type: Spontaneous
  Country: HK (occurrence: HK)
  Receive Date: 20200521
  Receipt Date: 20200521
  Transmission Date: 20200714
  Serious: Yes (Hospitalization, Other)
  Sender: FDA-Public Use
  Company Number: HK-JNJFOC-20200522700

PATIENT
  Age: 30 Year
  Sex: Female

DRUGS (1)
  1. TRAMADOL HYDROCHLORIDE. [Suspect]
     Active Substance: TRAMADOL HYDROCHLORIDE
     Indication: PRODUCT USED FOR UNKNOWN INDICATION
     Dosage: UNK
     Route: 065

REACTIONS (8)
  - Seizure [Unknown]
  - Loss of consciousness [Unknown]
  - Respiratory failure [Unknown]
  - Toxicity to various agents [Unknown]
  - Metabolic acidosis [Unknown]
  - Miosis [Unknown]
  - Respiratory acidosis [Unknown]
  - Overdose [Unknown]
